FAERS Safety Report 10921359 (Version 1)
Quarter: 2015Q1

REPORT INFORMATION
  Report Type: Spontaneous
  Country: US (occurrence: None)
  Receive Date: 20150313
  Receipt Date: 20150313
  Transmission Date: 20150721
  Serious: Yes (Hospitalization)
  Sender: FDA-Public Use
  Company Number: None

PATIENT
  Age: 54 Year
  Sex: Female
  Weight: 92.73 kg

DRUGS (1)
  1. CISPLATIN. [Suspect]
     Active Substance: CISPLATIN
     Dates: start: 20150225

REACTIONS (6)
  - Atrial flutter [None]
  - Chest pain [None]
  - Hypertension [None]
  - Dyspnoea [None]
  - Hypokalaemia [None]
  - Anaemia [None]

NARRATIVE: CASE EVENT DATE: 20150304
